FAERS Safety Report 8502002-2 (Version None)
Quarter: 2012Q3

REPORT INFORMATION
  Report Type: 
  Country: None (occurrence: None)
  Receive Date: 20120711
  Receipt Date: 20120620
  Transmission Date: 20120928
  Serious: Yes (Other)
  Sender: FDA-Public Use
  Company Number: BR-JNJFOC-20120611141

PATIENT
  Sex: Female
  Weight: 71 kg

DRUGS (8)
  1. REMICADE [Suspect]
     Indication: RHEUMATOID ARTHRITIS
     Route: 042
     Dates: start: 20110101
  2. INSULIN [Concomitant]
     Indication: DIABETES MELLITUS
     Route: 065
  3. LOSARTAN POTASSIUM [Concomitant]
     Indication: HYPERTENSION
     Route: 065
  4. AMLODIPINE [Concomitant]
     Indication: HYPERTENSION
     Route: 065
  5. REMICADE [Suspect]
     Indication: PSORIASIS
     Route: 042
     Dates: start: 20110101
  6. REMICADE [Suspect]
     Route: 042
     Dates: start: 20120224
  7. REMICADE [Suspect]
     Route: 042
     Dates: start: 20120224
  8. SIMVASTATIN [Concomitant]
     Indication: HYPERCHOLESTEROLAEMIA
     Route: 065

REACTIONS (4)
  - URINARY TRACT INFECTION [None]
  - NEUROPATHY PERIPHERAL [None]
  - INFUSION RELATED REACTION [None]
  - PRURITUS GENERALISED [None]
